FAERS Safety Report 5360590-1 (Version None)
Quarter: 2007Q2

REPORT INFORMATION
  Report Type: 
  Country: None (occurrence: None)
  Receive Date: 20070618
  Receipt Date: 20070606
  Transmission Date: 20071010
  Serious: Yes (Other)
  Sender: FDA-Public Use
  Company Number: CA-ELI_LILLY_AND_COMPANY-CA200706002299

PATIENT
  Age: 60 Year
  Sex: Female

DRUGS (6)
  1. GEMZAR [Suspect]
     Indication: BREAST CANCER METASTATIC
     Dosage: 1800 MG, OTHER
     Dates: start: 20070503
  2. CISPLATIN [Concomitant]
     Indication: BREAST CANCER METASTATIC
     Dosage: 135 MG, UNK
     Dates: start: 20070503
  3. WARFARIN SODIUM [Concomitant]
  4. METFORMIN HCL [Concomitant]
  5. IRBESARTAN [Concomitant]
  6. OMEPRAZOLE [Concomitant]

REACTIONS (3)
  - BLOOD CALCIUM DECREASED [None]
  - BLOOD MAGNESIUM DECREASED [None]
  - MUSCLE SPASMS [None]
